FAERS Safety Report 16169649 (Version 3)
Quarter: 2019Q2

REPORT INFORMATION
  Report Type: Spontaneous
  Country: JP (occurrence: JP)
  Receive Date: 20190408
  Receipt Date: 20190422
  Transmission Date: 20190711
  Serious: Yes (Hospitalization)
  Sender: FDA-Public Use
  Company Number: JP-JNJFOC-20190411780

PATIENT
  Age: 33 Year
  Sex: Female
  Weight: 52.9 kg

DRUGS (6)
  1. FENTOS [Concomitant]
     Active Substance: FENTANYL
     Route: 062
     Dates: start: 20190314, end: 20190329
  2. NAUZELIN [Concomitant]
     Active Substance: DOMPERIDONE
     Route: 048
     Dates: start: 20190320
  3. SYMPROIC [Concomitant]
     Active Substance: NALDEMEDINE
     Route: 048
     Dates: start: 20190306
  4. LOXOPROFEN [Concomitant]
     Active Substance: LOXOPROFEN
     Route: 048
     Dates: start: 20181106
  5. YONDELIS [Suspect]
     Active Substance: TRABECTEDIN
     Indication: NEUROFIBROSARCOMA
     Route: 041
     Dates: start: 20190226, end: 20190326
  6. MAGNESIUM OXIDE. [Concomitant]
     Active Substance: MAGNESIUM OXIDE
     Route: 048
     Dates: start: 20181211, end: 20190329

REACTIONS (2)
  - Aspartate aminotransferase increased [Recovering/Resolving]
  - Alanine aminotransferase increased [Recovering/Resolving]

NARRATIVE: CASE EVENT DATE: 20190328
